FAERS Safety Report 20838033 (Version 1)
Quarter: 2022Q2

REPORT INFORMATION
  Report Type: Spontaneous
  Country: US (occurrence: None)
  Receive Date: 20220517
  Receipt Date: 20220517
  Transmission Date: 20220720
  Serious: Yes (Other)
  Sender: FDA-Public Use
  Company Number: US-ROCHE-3064489

PATIENT
  Age: 69 Year
  Sex: Female

DRUGS (4)
  1. XELODA [Suspect]
     Active Substance: CAPECITABINE
     Indication: Product used for unknown indication
     Route: 048
  2. TUKYSA [Suspect]
     Active Substance: TUCATINIB
     Indication: Product used for unknown indication
     Dosage: 150MG 2 BY MOUTH DAILY
     Route: 065
  3. ELIQUIS [Concomitant]
     Active Substance: APIXABAN
     Route: 065
  4. PRADAXA [Concomitant]
     Active Substance: DABIGATRAN ETEXILATE MESYLATE

REACTIONS (5)
  - Thrombosis [Unknown]
  - Palmar-plantar erythrodysaesthesia syndrome [Unknown]
  - Thrombosis [Unknown]
  - Feeling abnormal [Unknown]
  - Thrombosis [Unknown]

NARRATIVE: CASE EVENT DATE: 20220408
